FAERS Safety Report 9331194 (Version 1)
Quarter: 2013Q2

REPORT INFORMATION
  Report Type: Spontaneous
  Country: US (occurrence: US)
  Receive Date: 20130605
  Receipt Date: 20130605
  Transmission Date: 20140414
  Serious: Yes (Hospitalization, Other)
  Sender: FDA-Public Use
  Company Number: US-009507513-2010SP006041

PATIENT
  Sex: Female
  Weight: 58.6 kg

DRUGS (2)
  1. NUVARING [Suspect]
     Indication: MENOPAUSAL SYMPTOMS
     Route: 067
     Dates: start: 200807, end: 200809
  2. TYLENOL [Concomitant]
     Dosage: TWO TABLETS EVERY 2-3 HOURS
     Route: 048

REACTIONS (9)
  - Pulmonary embolism [Recovered/Resolved]
  - Deep vein thrombosis [Unknown]
  - Pneumonitis [Unknown]
  - Mallory-Weiss syndrome [Unknown]
  - Hepatic mass [Unknown]
  - Emotional disorder [Unknown]
  - Off label use [Unknown]
  - Depression [Unknown]
  - Asthma [Unknown]
